FAERS Safety Report 7076581-9 (Version None)
Quarter: 2010Q4

REPORT INFORMATION
  Report Type: 
  Country: None (occurrence: None)
  Receive Date: 20101101
  Receipt Date: 20101021
  Transmission Date: 20110411
  Serious: Yes (Other)
  Sender: FDA-Public Use
  Company Number: GB-PFIZER INC-2010082072

PATIENT
  Age: 26 Year
  Sex: Female
  Weight: 76 kg

DRUGS (2)
  1. SERTRALINE HYDROCHLORIDE [Suspect]
     Indication: DEPRESSION
     Dosage: 100 MG, UNK
  2. CIPRALEX [Suspect]
     Indication: DEPRESSION
     Dosage: 20 MG, UNK

REACTIONS (1)
  - INTRA-UTERINE DEATH [None]
